FAERS Safety Report 5256439-8 (Version None)
Quarter: 2007Q1

REPORT INFORMATION
  Report Type: 
  Country: None (occurrence: None)
  Receive Date: 20070301
  Receipt Date: 20070220
  Transmission Date: 20070707
  Serious: Yes (Other)
  Sender: FDA-Public Use
  Company Number: SPV1-2007-00842

PATIENT
  Age: 8 Year
  Sex: Female
  Weight: 54.5 kg

DRUGS (6)
  1. ADDERALL XR 10 [Suspect]
     Indication: ATTENTION DEFICIT/HYPERACTIVITY DISORDER
     Dosage: 30 MG, 1X/DAY; QD, ORAL
     Route: 048
     Dates: end: 20061001
  2. ADDERALL 10 [Suspect]
     Indication: ATTENTION DEFICIT/HYPERACTIVITY DISORDER
     Dosage: 30 MG, 3X/DAY; TID, ORAL
     Route: 048
     Dates: start: 20000215
  3. STRATTERA [Concomitant]
  4. RITALIN [Concomitant]
  5. RISPERDAL [Concomitant]
  6. CLONIDINE [Concomitant]

REACTIONS (14)
  - ABDOMINAL PAIN UPPER [None]
  - BLOOD PRESSURE DECREASED [None]
  - CHEST PAIN [None]
  - CONVULSION [None]
  - DIZZINESS [None]
  - HYPERTHYROIDISM [None]
  - INSOMNIA [None]
  - RESTLESSNESS [None]
  - SEDATION [None]
  - SUICIDAL IDEATION [None]
  - SUICIDE ATTEMPT [None]
  - TACHYCARDIA [None]
  - TREMOR [None]
  - WEIGHT DECREASED [None]
